FAERS Safety Report 24638102 (Version 2)
Quarter: 2024Q4

REPORT INFORMATION
  Report Type: Spontaneous
  Country: JP (occurrence: JP)
  Receive Date: 20241119
  Receipt Date: 20241130
  Transmission Date: 20250115
  Serious: Yes (Other)
  Sender: AMGEN
  Company Number: JP-AMGEN-JPNSP2024225655

PATIENT

DRUGS (2)
  1. BLINCYTO [Suspect]
     Active Substance: BLINATUMOMAB
     Indication: Acute leukaemia
     Dosage: UNK, DRIP INFUSION
     Route: 040
  2. TACROLIMUS [Concomitant]
     Active Substance: TACROLIMUS
     Indication: Prophylaxis

REACTIONS (2)
  - Venoocclusive liver disease [Unknown]
  - Thrombotic microangiopathy [Unknown]
